FAERS Safety Report 6700949-0 (Version None)
Quarter: 2010Q2

REPORT INFORMATION
  Report Type: 
  Country: None (occurrence: None)
  Receive Date: 20100428
  Receipt Date: 20100414
  Transmission Date: 20101027
  Serious: Yes (Other)
  Sender: FDA-Public Use
  Company Number: DE-MYLANLABS-2010S1006569

PATIENT
  Age: 23 Year
  Sex: Male

DRUGS (5)
  1. CLOZAPINE [Suspect]
     Indication: PSYCHOTIC DISORDER
     Route: 048
     Dates: start: 20100301
  2. AKINETON /00079501/ [Concomitant]
     Indication: DRUG USE FOR UNKNOWN INDICATION
  3. LORAZEPAM [Concomitant]
     Indication: DRUG USE FOR UNKNOWN INDICATION
  4. HALDOL [Concomitant]
     Indication: DRUG USE FOR UNKNOWN INDICATION
  5. INVEGA /05724801/ [Concomitant]
     Indication: DRUG USE FOR UNKNOWN INDICATION

REACTIONS (2)
  - AGGRESSION [None]
  - CONVULSION [None]
